FAERS Safety Report 21983479 (Version 1)
Quarter: 2023Q1

REPORT INFORMATION
  Report Type: Spontaneous
  Country: US (occurrence: US)
  Receive Date: 20230213
  Receipt Date: 20230213
  Transmission Date: 20230417
  Serious: Yes (Hospitalization, Other)
  Sender: FDA-Public Use
  Company Number: US-SA-SAC20230210000786

PATIENT
  Sex: Female

DRUGS (1)
  1. DUPIXENT [Suspect]
     Active Substance: DUPILUMAB
     Indication: Neurodermatitis
     Dosage: 300 MG, EVERY OTHER WEEK
     Route: 058

REACTIONS (5)
  - Transient ischaemic attack [Unknown]
  - Malaise [Unknown]
  - Asthenia [Unknown]
  - Blood cholesterol increased [Unknown]
  - Illness [Unknown]
